FAERS Safety Report 16361575 (Version 1)
Quarter: 2019Q3

REPORT INFORMATION
  Report Type: Spontaneous
  Country: US (occurrence: US)
  Receive Date: 20190524
  Receipt Date: 20190524
  Transmission Date: 20191004
  Serious: Yes (Life-Threatening)
  Sender: FDA-Public Use
  Company Number: None

PATIENT
  Age: 86 Year
  Sex: Female
  Weight: 79.3 kg

DRUGS (17)
  1. PROTAMINE SULFATE. [Suspect]
     Active Substance: PROTAMINE SULFATE
     Indication: PROCOAGULANT THERAPY
     Route: 042
     Dates: start: 20190523, end: 20190523
  2. MAGNESIUM SULFATE. [Concomitant]
     Active Substance: MAGNESIUM SULFATE
     Dates: start: 20190523, end: 20190523
  3. FENTANYL. [Concomitant]
     Active Substance: FENTANYL
     Dates: start: 20190523, end: 20190523
  4. EPINEPHRINE. [Concomitant]
     Active Substance: EPINEPHRINE
     Dates: start: 20190523, end: 20190523
  5. VECURONIUM [Concomitant]
     Active Substance: VECURONIUM BROMIDE
     Dates: start: 20190523, end: 20190523
  6. SUFENTANIL [Concomitant]
     Active Substance: SUFENTANIL
     Dates: start: 20190523, end: 20190523
  7. VANCOMYCIN [Concomitant]
     Active Substance: VANCOMYCIN
     Dates: start: 20190523, end: 20190523
  8. FUROSEMIDE. [Concomitant]
     Active Substance: FUROSEMIDE
     Dates: start: 20190523, end: 20190523
  9. INSULIN [Concomitant]
     Active Substance: INSULIN NOS
     Dates: start: 20190523, end: 20190523
  10. CALCIUM CHLORIDE. [Concomitant]
     Active Substance: CALCIUM CHLORIDE
     Dates: start: 20190523, end: 20190523
  11. EPHEDRINE. [Concomitant]
     Active Substance: EPHEDRINE
     Dates: start: 20190523, end: 20190523
  12. HEPARIN [Concomitant]
     Active Substance: HEPARIN SODIUM
     Dates: start: 20190523, end: 20190523
  13. LIDOCAINE. [Concomitant]
     Active Substance: LIDOCAINE
     Dates: start: 20190523, end: 20190523
  14. METHYLPREDNISOLONE. [Concomitant]
     Active Substance: METHYLPREDNISOLONE
     Dates: start: 20190523, end: 20190523
  15. SODIUM BICARBONATE. [Concomitant]
     Active Substance: SODIUM BICARBONATE
     Dates: start: 20190523, end: 20190523
  16. PHENYLEPHRINE [Concomitant]
     Active Substance: PHENYLEPHRINE HYDROCHLORIDE
     Dates: start: 20190523, end: 20190523
  17. MIDAZOLAM [Concomitant]
     Active Substance: MIDAZOLAM HYDROCHLORIDE
     Dates: start: 20190523, end: 20190523

REACTIONS (1)
  - Pulse absent [None]

NARRATIVE: CASE EVENT DATE: 20190523
